FAERS Safety Report 16193979 (Version 7)
Quarter: 2020Q3

REPORT INFORMATION
  Report Type: Report from Study
  Country: FR (occurrence: FR)
  Receive Date: 20190413
  Receipt Date: 20200703
  Transmission Date: 20201102
  Serious: Yes (Hospitalization, Congenital Anomaly)
  Sender: FDA-Public Use
  Company Number: PHHY2019FR078877

PATIENT
  Age: 55 Year
  Sex: Male

DRUGS (8)
  1. PERINDOPRIL [Concomitant]
     Active Substance: PERINDOPRIL
     Indication: BLOOD PRESSURE INCREASED
     Route: 065
  2. STATIN [Concomitant]
     Active Substance: UNSPECIFIED INGREDIENT
     Indication: PRODUCT USED FOR UNKNOWN INDICATION
     Route: 065
  3. ASPIRIN. [Concomitant]
     Active Substance: ASPIRIN
     Indication: PRODUCT USED FOR UNKNOWN INDICATION
     Route: 065
  4. OCTREOTIDE. [Suspect]
     Active Substance: OCTREOTIDE
     Indication: ACROMEGALY
     Route: 065
  5. OCTREOTIDE. [Suspect]
     Active Substance: OCTREOTIDE
     Dosage: 20 MG
     Route: 030
     Dates: start: 20181228
  6. OCTREOTIDE. [Suspect]
     Active Substance: OCTREOTIDE
     Dosage: 20 MG
     Route: 030
     Dates: start: 20190308
  7. OCTREOTIDE. [Suspect]
     Active Substance: OCTREOTIDE
     Dosage: 20 MG
     Route: 030
     Dates: start: 20190201
  8. OCTREOTIDE. [Suspect]
     Active Substance: OCTREOTIDE
     Dosage: 20 MG
     Route: 030
     Dates: start: 20190405

REACTIONS (11)
  - Haemorrhoids [Recovered/Resolved]
  - Blood pressure systolic decreased [Unknown]
  - Concomitant disease aggravated [Recovered/Resolved]
  - Sinus bradycardia [Unknown]
  - Diarrhoea [Unknown]
  - Malaise [Unknown]
  - Syncope [Recovered/Resolved]
  - Proctitis [Unknown]
  - Congenital central nervous system anomaly [Unknown]
  - Weight decreased [Unknown]
  - Blood pressure systolic increased [Unknown]

NARRATIVE: CASE EVENT DATE: 2019
